FAERS Safety Report 8786482 (Version 2)
Quarter: 2012Q4

REPORT INFORMATION
  Report Type: 
  Country: US (occurrence: US)
  Receive Date: 20120914
  Receipt Date: 20121001
  Transmission Date: 20130627
  Serious: Yes (Death)
  Sender: FDA-Public Use
  Company Number: US-PFIZER INC-2012219246

PATIENT
  Age: 69 Year
  Sex: Male
  Weight: 94.3 kg

DRUGS (21)
  1. PF-04856884 [Suspect]
     Indication: METASTATIC RENAL CELL CARCINOMA
     Dosage: 1000 mg, weekly
     Route: 042
     Dates: start: 20120427, end: 20120911
  2. AXITINIB [Suspect]
     Indication: METASTATIC RENAL CELL CARCINOMA
     Dosage: 3 mg, 2x/day
     Route: 048
     Dates: start: 20120427, end: 20120911
  3. ACETAMINOPHEN EXTRA STRENGTH [Concomitant]
     Indication: PAIN
     Dosage: UNK
     Dates: start: 20120701
  4. CALCIUM CITRATE/COLECALCIFEROL [Concomitant]
     Indication: SUPPLEMENTATION THERAPY
     Dosage: UNK
     Dates: start: 20111104
  5. VITAMIN B12 [Concomitant]
     Indication: SUPPLEMENTATION THERAPY
     Dosage: UNK
     Dates: start: 2004
  6. OCTREOTIDE ACETATE [Concomitant]
     Indication: DIARRHOEA
     Dosage: 20 mg, once
     Route: 030
     Dates: start: 20120827, end: 20120827
  7. ATROPINE [Concomitant]
     Indication: DIARRHOEA
     Dosage: 0.4 mg, once
     Route: 042
     Dates: start: 20120827, end: 20120827
  8. DEXAMETHASONE [Concomitant]
     Indication: NAUSEA
     Dosage: 5 mg, once
     Route: 042
     Dates: start: 20120827, end: 20120827
  9. GRANISETRON [Concomitant]
     Indication: NAUSEA
     Dosage: UNK
     Dates: start: 20120721
  10. GRANISETRON [Concomitant]
     Dosage: 1000 ug, Once
     Route: 042
     Dates: start: 20120830, end: 20120830
  11. PEPCID COMPLETE [Concomitant]
     Indication: DYSPEPSIA
     Dosage: 1 tablet once
     Route: 048
     Dates: start: 20120829, end: 20120829
  12. PEPCID COMPLETE [Concomitant]
     Indication: ABDOMINAL DISTENSION
  13. REGLAN [Concomitant]
     Indication: NAUSEA
     Dosage: 10 mg, QID,PRN
     Route: 048
     Dates: start: 20120823
  14. SYNTHROID [Concomitant]
     Indication: HYPOTHYROIDISM
     Dosage: 400 ug,daily
     Route: 048
     Dates: start: 20120820
  15. ALLOPURINOL [Concomitant]
     Indication: GOUT
     Dosage: UNK
     Dates: start: 1997
  16. ASPIRIN [Concomitant]
     Indication: SUPPLEMENTATION THERAPY
     Dosage: UNK
     Dates: start: 2000
  17. HYDROCHLOROTHIAZIDE [Concomitant]
     Indication: HYPERTENSION
     Dosage: UNK
     Dates: start: 20120430
  18. HYDROCORTISONE [Concomitant]
     Indication: ADRENAL INSUFFICIENCY
     Dosage: UNK
     Dates: start: 20111227
  19. SCOPOLAMINE PATCH [Concomitant]
     Indication: NAUSEA
     Dosage: UNK
     Dates: start: 20120817
  20. LOPERAMIDE [Concomitant]
     Indication: DIARRHOEA
     Dosage: UNK
     Dates: start: 20120816, end: 20120821
  21. VITAMIN C WITH ROSE HIP [Concomitant]
     Indication: SUPPLEMENTATION THERAPY
     Dosage: UNK
     Dates: start: 1992

REACTIONS (1)
  - Gastrointestinal disorder [Fatal]
